FAERS Safety Report 17828138 (Version 1)
Quarter: 2020Q2

REPORT INFORMATION
  Report Type: Spontaneous
  Country: US (occurrence: US)
  Receive Date: 20200526
  Receipt Date: 20200526
  Transmission Date: 20200714
  Serious: Yes (Hospitalization)
  Sender: FDA-Public Use
  Company Number: None

PATIENT
  Age: 67 Year
  Sex: Male
  Weight: 81.6 kg

DRUGS (2)
  1. GASTROJEJUNOSTOMY TUBE [Suspect]
     Active Substance: DEVICE
  2. PEMBROLIZUMAB. [Suspect]
     Active Substance: PEMBROLIZUMAB
     Indication: GLOTTIS CARCINOMA
     Route: 041
     Dates: start: 20200224

REACTIONS (2)
  - Catheter site pain [None]
  - Gastrostomy tube site complication [None]

NARRATIVE: CASE EVENT DATE: 20200513
